FAERS Safety Report 5605151-1 (Version None)
Quarter: 2008Q1

REPORT INFORMATION
  Report Type: 
  Country: None (occurrence: None)
  Receive Date: 20080123
  Receipt Date: 20080110
  Transmission Date: 20080703
  Serious: Yes (Other)
  Sender: FDA-Public Use
  Company Number: DSU-2008-00046

PATIENT
  Age: 67 Year
  Sex: Female

DRUGS (5)
  1. AZOR [Suspect]
     Indication: HYPERTENSION
     Dosage: 5/20 MG (QD), PER ORAL
     Route: 048
     Dates: start: 20071229, end: 20080108
  2. LISINOPRIL WITH HYDROCHLOROTHIAZIDE (HYDROCHLOROTHIAZIDE, LISINOPRIL) [Concomitant]
  3. METOPROLOL (METOPROLOL) (100 MILLIGRAM, TABLET) (METOPROLOL) [Concomitant]
  4. AMARYL (GLIMEPIRIDE) (4 MILLIGRAM, TABLET) (GLIMEPIRIDE) [Concomitant]
  5. LASIX (FUROSEMIDE) (40 MILLIGRAM, TABLET) (FUROSEMIDE) [Concomitant]

REACTIONS (4)
  - ARTHRALGIA [None]
  - DYSPNOEA [None]
  - JOINT SWELLING [None]
  - PHARYNGEAL OEDEMA [None]
